FAERS Safety Report 5117242-2 (Version None)
Quarter: 2006Q3

REPORT INFORMATION
  Report Type: 
  Country: None (occurrence: None)
  Receive Date: 20060926
  Receipt Date: 20060915
  Transmission Date: 20061208
  Serious: Yes (Death, Other)
  Sender: FDA-Public Use
  Company Number: 2005172597

PATIENT
  Age: 49 Year
  Sex: Female
  Weight: 86.1834 kg

DRUGS (14)
  1. NEURONTIN [Suspect]
     Indication: NEUROPATHY PERIPHERAL
     Dosage: 800 MG (100 MG, 8 IN 1 D)
     Dates: start: 20021001
  2. NEURONTIN [Suspect]
     Indication: RESTLESS LEGS SYNDROME
     Dosage: 800 MG (100 MG, 8 IN 1 D)
     Dates: start: 20021001
  3. PERCOCET [Suspect]
     Dosage: (3 TABLETS EVERY OTHER DAY)
  4. AMBIEN [Suspect]
     Dosage: 10 MG (10 MG, 1 IN 1 D)
     Dates: start: 19991001
  5. CELEBREX [Concomitant]
  6. SERZONE [Concomitant]
  7. PLAQUENIL [Concomitant]
  8. BOTULINUM TOXIN TYPE A (VOTULINUM TOXIN TYPE A) [Concomitant]
  9. POTASSIUM (POTASSIUM) [Concomitant]
  10. ATACAND [Concomitant]
  11. ZANAFLEX [Concomitant]
  12. HYDROCHLOROTHIAZIDE [Concomitant]
  13. SENNA (SENNA) [Concomitant]
  14. HALOPERIDOL [Concomitant]

REACTIONS (16)
  - BACTERIAL INFECTION [None]
  - CARDIAC DISORDER [None]
  - CELL DEATH [None]
  - COMPLETED SUICIDE [None]
  - DEPRESSED MOOD [None]
  - DRUG INEFFECTIVE [None]
  - DRUG TOXICITY [None]
  - EXOSTOSIS [None]
  - FIBROSIS [None]
  - HEPATIC CONGESTION [None]
  - PAIN [None]
  - PANCREATIC DISORDER [None]
  - PLANTAR FASCIITIS [None]
  - PULMONARY CONGESTION [None]
  - RENAL DISORDER [None]
  - SUICIDAL IDEATION [None]
